FAERS Safety Report 6926460-X (Version None)
Quarter: 2010Q3

REPORT INFORMATION
  Report Type: 
  Country: None (occurrence: None)
  Receive Date: 20100816
  Receipt Date: 20100716
  Transmission Date: 20110219
  Serious: Yes (Other)
  Sender: FDA-Public Use
  Company Number: RU-BAYER-201029323GPV

PATIENT
  Age: 26 Year
  Sex: Female

DRUGS (1)
  1. BETAFERON [Suspect]
     Indication: MULTIPLE SCLEROSIS
     Route: 058
     Dates: start: 20081101

REACTIONS (7)
  - ABORTION MISSED [None]
  - ASTHENIA [None]
  - BODY TEMPERATURE INCREASED [None]
  - DECREASED APPETITE [None]
  - HIGH RISK PREGNANCY [None]
  - MENSTRUATION DELAYED [None]
  - VIRAL INFECTION [None]
